FAERS Safety Report 6426492-4 (Version None)
Quarter: 2009Q4

REPORT INFORMATION
  Report Type: 
  Country: None (occurrence: None)
  Receive Date: 20091030
  Receipt Date: 20091020
  Transmission Date: 20100525
  Serious: Yes (Hospitalization)
  Sender: FDA-Public Use
  Company Number: 2009SP031618

PATIENT
  Sex: Male

DRUGS (4)
  1. PEG-INTRON [Suspect]
     Indication: HEPATITIS C
     Dosage: 150 MCG; QW; SC
     Route: 058
     Dates: start: 20080321, end: 20090217
  2. REBETOL [Suspect]
     Indication: HEPATITIS C
     Dosage: 1000 MG; QD; PO
     Route: 048
     Dates: start: 20080321, end: 20090217
  3. EPREX [Concomitant]
  4. BENEFIX [Concomitant]

REACTIONS (5)
  - DISEASE RECURRENCE [None]
  - HEPATITIS C [None]
  - MUSCULOSKELETAL PAIN [None]
  - NECK PAIN [None]
  - THYROID CANCER [None]
